FAERS Safety Report 8169123-8 (Version None)
Quarter: 2012Q1

REPORT INFORMATION
  Report Type: 
  Country: None (occurrence: None)
  Receive Date: 20120227
  Receipt Date: 20120216
  Transmission Date: 20120608
  Serious: Yes (Life-Threatening, Hospitalization, Other)
  Sender: FDA-Public Use
  Company Number: US-B.I. PHARMACEUTICALS,INC./RIDGEFIELD-2012-EU-00991GD

PATIENT
  Age: 38 Year
  Sex: Female

DRUGS (3)
  1. HYDROXYCITRIC ACID HERBAL SUPPLEMENT [Suspect]
     Dosage: 357.1429 MG
  2. HYDROCODONE BITARTRATE AND ACETAMINOPHEN [Suspect]
     Indication: ABDOMINAL PAIN
     Dosage: HYDROCODONE 5/ ACETAMINOPHEN 500
     Route: 048
  3. RANITIDINE [Suspect]
     Dosage: 150 MG

REACTIONS (5)
  - HYPERTENSION [None]
  - NAUSEA [None]
  - ABDOMINAL PAIN [None]
  - VOMITING [None]
  - RENAL FAILURE ACUTE [None]
